FAERS Safety Report 9311770 (Version 2)
Quarter: 2013Q4

REPORT INFORMATION
  Report Type: Spontaneous
  Country: US (occurrence: US)
  Receive Date: 20130524
  Receipt Date: 20131004
  Transmission Date: 20140711
  Serious: Yes (Other)
  Sender: FDA-Public Use
  Company Number: US-RB-054170-13

PATIENT
  Age: 32 Year
  Sex: Female

DRUGS (5)
  1. SUBOXONE FILM [Suspect]
     Indication: DRUG DEPENDENCE
     Dosage: SUBOXONE FILM
     Route: 060
     Dates: start: 2012, end: 201304
  2. SUBOXONE FILM [Suspect]
     Dosage: SUBOXONE FILM
     Route: 060
     Dates: start: 20130923, end: 20130923
  3. BACTRIM [Suspect]
     Indication: CYSTITIS
     Dosage: DOSING DETAILS UNKNOWN
     Route: 048
     Dates: start: 201304, end: 201304
  4. CELEXA [Concomitant]
     Indication: DEPRESSION
     Dosage: DOSING DETAILS UNKNOWN
     Route: 048
  5. ESTRADIOL [Concomitant]
     Indication: HORMONE REPLACEMENT THERAPY
     Dosage: DOSING DETAILS UNKNOWN
     Route: 065

REACTIONS (12)
  - Pruritus [Not Recovered/Not Resolved]
  - Cystitis [Not Recovered/Not Resolved]
  - Urticaria [Not Recovered/Not Resolved]
  - Off label use [Recovered/Resolved]
  - Pharyngeal oedema [Not Recovered/Not Resolved]
  - Dyspnoea [Not Recovered/Not Resolved]
  - Drug withdrawal syndrome [Recovered/Resolved]
  - Migraine [Not Recovered/Not Resolved]
  - Underdose [Recovered/Resolved]
  - Depression [Not Recovered/Not Resolved]
  - Off label use [Not Recovered/Not Resolved]
  - Vomiting [Recovered/Resolved]
